FAERS Safety Report 5122837-6 (Version None)
Quarter: 2006Q4

REPORT INFORMATION
  Report Type: 
  Country: None (occurrence: None)
  Receive Date: 20061004
  Receipt Date: 20061004
  Transmission Date: 20070319
  Serious: No
  Sender: FDA-Public Use
  Company Number: None

PATIENT

DRUGS (2)
  1. ACTONEL [Suspect]
     Indication: OSTEOPOROSIS
     Dosage: 5 MG  QD
     Dates: start: 20010801, end: 20020401
  2. FOSAMAX [Suspect]
     Indication: OSTEOPOROSIS
     Dosage: 70 MG PO WEEKLY
     Route: 048
     Dates: start: 20020401, end: 20060101

REACTIONS (2)
  - JAW DISORDER [None]
  - OSTEONECROSIS [None]
